FAERS Safety Report 4371413-1 (Version None)
Quarter: 2004Q2

REPORT INFORMATION
  Report Type: 
  Country: None (occurrence: None)
  Receive Date: 20040607
  Receipt Date: 20040527
  Transmission Date: 20050107
  Serious: Yes (Hospitalization)
  Sender: FDA-Public Use
  Company Number: US-BRISTOL-MYERS SQUIBB COMPANY-12598272

PATIENT
  Sex: Female

DRUGS (1)
  1. SERZONE [Suspect]
     Route: 048

REACTIONS (3)
  - BLOOD PRESSURE DECREASED [None]
  - RESPIRATORY RATE DECREASED [None]
  - URINARY RETENTION [None]
